FAERS Safety Report 9291014 (Version 1)
Quarter: 2013Q2

REPORT INFORMATION
  Report Type: Spontaneous
  Country: CH (occurrence: CH)
  Receive Date: 20130515
  Receipt Date: 20130515
  Transmission Date: 20140414
  Serious: Yes (Hospitalization, Other)
  Sender: FDA-Public Use
  Company Number: CH-009507513-1305CHE008897

PATIENT
  Age: 91 Year
  Sex: Female

DRUGS (9)
  1. REMERON [Suspect]
     Indication: AFFECTIVE DISORDER
     Dosage: 30 MG, QD
     Route: 048
     Dates: end: 20130501
  2. REMERON [Suspect]
     Dosage: 15 MG, QD
     Route: 048
     Dates: start: 20130426, end: 20130501
  3. ELTROXIN [Concomitant]
     Dosage: 0.025 MG, QD
     Route: 048
  4. PANTOPRAZOLE [Concomitant]
     Dosage: 20 MG, QD
     Route: 048
  5. AMLODIPINE [Concomitant]
     Dosage: 5 MG, QD
     Route: 048
  6. LISINOPRIL [Concomitant]
     Dosage: 30 MG, QD
     Route: 048
  7. LEXOTANIL [Concomitant]
     Dosage: 0.5 MG, TID
     Route: 048
  8. ATENOLOL [Concomitant]
     Dosage: 50 MG, QD
     Route: 048
  9. LAXOBERON [Concomitant]
     Indication: LAXATIVE SUPPORTIVE CARE

REACTIONS (3)
  - Hyponatraemia [Recovering/Resolving]
  - Inappropriate antidiuretic hormone secretion [Recovering/Resolving]
  - Adnexa uteri cyst [Unknown]
